FAERS Safety Report 4378419-7 (Version None)
Quarter: 2004Q2

REPORT INFORMATION
  Report Type: 
  Country: None (occurrence: None)
  Receive Date: 20040609
  Receipt Date: 20040602
  Transmission Date: 20050107
  Serious: Yes (Death)
  Sender: FDA-Public Use
  Company Number: KII-2000-0000718

PATIENT
  Sex: Male

DRUGS (2)
  1. MORPHINE SULFATE [Suspect]
  2. ROXANOL (MORPHINE SULFATE) [Suspect]
     Dosage: 20 MG, Q4H

REACTIONS (1)
  - DEATH [None]
